FAERS Safety Report 9001023 (Version 1)
Quarter: 2013Q1

REPORT INFORMATION
  Report Type: Spontaneous
  Country: US (occurrence: None)
  Receive Date: 20130103
  Receipt Date: 20130103
  Transmission Date: 20140127
  Serious: Yes (Life-Threatening, Hospitalization)
  Sender: FDA-Public Use
  Company Number: None

PATIENT
  Age: 86 Year
  Sex: Male
  Weight: 57.3 kg

DRUGS (13)
  1. CIPROFLOXACIN [Suspect]
     Indication: SEPSIS
     Route: 042
     Dates: start: 20121223, end: 20121225
  2. ASPIRIN [Concomitant]
  3. DEXTROSE [Concomitant]
  4. FERROUS SULFATE [Concomitant]
  5. FOLIC ACID [Concomitant]
  6. LASIX [Concomitant]
  7. NOVOLOG [Concomitant]
  8. LANTUS [Concomitant]
  9. SYNTHROID [Concomitant]
  10. ZYVOX [Concomitant]
  11. CANASA SUPPOSITORY [Concomitant]
  12. PROTONIX [Concomitant]
  13. ZOSYN [Concomitant]

REACTIONS (2)
  - Jaundice [None]
  - Liver function test abnormal [None]
